FAERS Safety Report 20008366 (Version 1)
Quarter: 2021Q4

REPORT INFORMATION
  Report Type: Spontaneous
  Country: GB (occurrence: GB)
  Receive Date: 20211028
  Receipt Date: 20211028
  Transmission Date: 20220303
  Serious: Yes (Other)
  Sender: FDA-Public Use
  Company Number: GB-STEMLINE THERAPEUTICS, INC.-2021ST000063

PATIENT
  Sex: Male

DRUGS (3)
  1. ELZONRIS [Suspect]
     Active Substance: TAGRAXOFUSP-ERZS
     Indication: Blastic plasmacytoid dendritic cell neoplasia
     Dosage: CYCLE ONE
     Route: 042
     Dates: start: 20210802, end: 2021
  2. ELZONRIS [Suspect]
     Active Substance: TAGRAXOFUSP-ERZS
     Dosage: CYCLE 2
     Route: 042
     Dates: start: 2021, end: 2021
  3. ELZONRIS [Suspect]
     Active Substance: TAGRAXOFUSP-ERZS
     Dosage: CYCLE 3
     Route: 042
     Dates: start: 2021, end: 2021

REACTIONS (2)
  - Epstein-Barr virus infection reactivation [Unknown]
  - Hepatic enzyme increased [Not Recovered/Not Resolved]

NARRATIVE: CASE EVENT DATE: 20210101
